FAERS Safety Report 23378894 (Version 2)
Quarter: 2025Q4

REPORT INFORMATION
  Report Type: Spontaneous
  Country: US (occurrence: US)
  Receive Date: 20240108
  Receipt Date: 20251204
  Transmission Date: 20260117
  Serious: Yes (Death, Life-Threatening, Hospitalization)
  Sender: MYLAN
  Company Number: US-MYLANLABS-2024M1002144

PATIENT
  Age: 74 Year
  Sex: Male

DRUGS (20)
  1. AMIODARONE [Suspect]
     Active Substance: AMIODARONE
     Indication: Coronary artery disease
     Dosage: UNK,HAD BEEN RECEIVING FOR MONTHS
  2. AMIODARONE [Suspect]
     Active Substance: AMIODARONE
     Indication: Ischaemic cardiomyopathy
     Dosage: UNK,HAD BEEN RECEIVING FOR MONTHS
     Route: 065
  3. AMIODARONE [Suspect]
     Active Substance: AMIODARONE
     Indication: Prophylaxis
     Dosage: UNK,HAD BEEN RECEIVING FOR MONTHS
     Route: 065
  4. AMIODARONE [Suspect]
     Active Substance: AMIODARONE
     Dosage: UNK,HAD BEEN RECEIVING FOR MONTHS
  5. METHIMAZOLE [Suspect]
     Active Substance: METHIMAZOLE
     Indication: Hyperthyroidism
     Dosage: 120 MILLIGRAM, QD
  6. METHIMAZOLE [Suspect]
     Active Substance: METHIMAZOLE
     Dosage: 120 MILLIGRAM, QD
     Route: 048
  7. METHIMAZOLE [Suspect]
     Active Substance: METHIMAZOLE
     Dosage: 120 MILLIGRAM, QD
     Route: 048
  8. METHIMAZOLE [Suspect]
     Active Substance: METHIMAZOLE
     Dosage: 120 MILLIGRAM, QD
  9. HYDROCORTISONE [Suspect]
     Active Substance: HYDROCORTISONE
     Indication: Hyperthyroidism
     Dosage: 300 MILLIGRAM, QD
  10. HYDROCORTISONE [Suspect]
     Active Substance: HYDROCORTISONE
     Dosage: 300 MILLIGRAM, QD
     Route: 042
  11. HYDROCORTISONE [Suspect]
     Active Substance: HYDROCORTISONE
     Dosage: 300 MILLIGRAM, QD
     Route: 042
  12. HYDROCORTISONE [Suspect]
     Active Substance: HYDROCORTISONE
     Dosage: 300 MILLIGRAM, QD
  13. CHOLESTYRAMINE [Suspect]
     Active Substance: CHOLESTYRAMINE
     Indication: Hyperthyroidism
     Dosage: UNK
  14. CHOLESTYRAMINE [Suspect]
     Active Substance: CHOLESTYRAMINE
     Dosage: UNK
     Route: 065
  15. CHOLESTYRAMINE [Suspect]
     Active Substance: CHOLESTYRAMINE
     Dosage: UNK
     Route: 065
  16. CHOLESTYRAMINE [Suspect]
     Active Substance: CHOLESTYRAMINE
     Dosage: UNK
  17. LUGOL [Suspect]
     Active Substance: IODINE\POTASSIUM IODIDE
     Indication: Hyperthyroidism
     Dosage: UNK
  18. LUGOL [Suspect]
     Active Substance: IODINE\POTASSIUM IODIDE
     Dosage: UNK
     Route: 065
  19. LUGOL [Suspect]
     Active Substance: IODINE\POTASSIUM IODIDE
     Dosage: UNK
     Route: 065
  20. LUGOL [Suspect]
     Active Substance: IODINE\POTASSIUM IODIDE
     Dosage: UNK

REACTIONS (6)
  - Cardiogenic shock [Fatal]
  - Thyrotoxic crisis [Fatal]
  - Hyperthyroidism [Fatal]
  - Cardiac arrest [Unknown]
  - Ventricular tachycardia [Unknown]
  - Drug ineffective [Unknown]
